FAERS Safety Report 5466687-X (Version None)
Quarter: 2007Q3

REPORT INFORMATION
  Report Type: 
  Country: None (occurrence: None)
  Receive Date: 20070920
  Receipt Date: 20070903
  Transmission Date: 20080115
  Serious: Yes (Other)
  Sender: FDA-Public Use
  Company Number: 6037721

PATIENT
  Sex: Male

DRUGS (1)
  1. GLUCOPHAGE [Suspect]
     Indication: TYPE 2 DIABETES MELLITUS
     Dosage: ORAL
     Route: 048

REACTIONS (1)
  - MYOCARDIAL INFARCTION [None]
